FAERS Safety Report 5929612-0 (Version None)
Quarter: 2008Q3

REPORT INFORMATION
  Report Type: 
  Country: None (occurrence: None)
  Receive Date: 20080922
  Receipt Date: 20071113
  Transmission Date: 20090109
  Serious: No
  Sender: FDA-Public Use
  Company Number: T200701419

PATIENT
  Age: 35 Year
  Sex: Male
  Weight: 63.5 kg

DRUGS (5)
  1. HYDROCODONE BITARTRATE + ACETAMINOPHEN [Suspect]
     Indication: PAIN
     Dosage: 1 TAB EVERY 6 HOURS ; 3 TABS ONE TIME
     Dates: start: 20071101, end: 20071101
  2. HYDROCODONE BITARTRATE + ACETAMINOPHEN [Suspect]
     Indication: PAIN
     Dosage: 1 TAB EVERY 6 HOURS ; 3 TABS ONE TIME
     Dates: start: 20071101, end: 20071101
  3. FLEXERIL [Concomitant]
  4. CLARITIN [Concomitant]
  5. HYDROCODONE BITARTRATE + ACETAMINOPHEN [Concomitant]

REACTIONS (5)
  - DRUG INEFFECTIVE [None]
  - INCORRECT DOSE ADMINISTERED [None]
  - LETHARGY [None]
  - NAUSEA [None]
  - VOMITING [None]
